FAERS Safety Report 20495803 (Version 8)
Quarter: 2022Q4

REPORT INFORMATION
  Report Type: Spontaneous
  Country: GB (occurrence: GB)
  Receive Date: 20220221
  Receipt Date: 20221223
  Transmission Date: 20230113
  Serious: Yes (Life-Threatening, Hospitalization, Disabling, Other)
  Sender: FDA-Public Use
  Company Number: None

PATIENT
  Age: 54 Year
  Sex: Female

DRUGS (11)
  1. LANSOPRAZOLE [Suspect]
     Active Substance: LANSOPRAZOLE
     Indication: Gastrooesophageal reflux disease
     Dosage: UNK
  2. OMEPRAZOLE [Suspect]
     Active Substance: OMEPRAZOLE
     Indication: Gastrooesophageal reflux disease
     Dosage: 20 MILLIGRAM
     Dates: start: 20190118, end: 20190120
  3. MODERNA COVID-19 VACCINE [Suspect]
     Active Substance: ELASOMERAN
     Indication: COVID-19 immunisation
     Dosage: 1 DOSAGE FORM, SINGLE
     Route: 030
     Dates: start: 20211204, end: 20211204
  4. DOMPERIDONE [Interacting]
     Active Substance: DOMPERIDONE
     Indication: Product used for unknown indication
     Dosage: UNK
  5. SOLIFENACIN SUCCINATE [Interacting]
     Active Substance: SOLIFENACIN SUCCINATE
     Dosage: UNK
  6. TRIMETHOPRIM [Suspect]
     Active Substance: TRIMETHOPRIM
     Indication: Urinary tract infection
     Dosage: 1200 MILLIGRAM, QD
  7. BECLOMETHASONE DIPROPIONATE [Concomitant]
     Active Substance: BECLOMETHASONE DIPROPIONATE
     Indication: Product used for unknown indication
     Dosage: UNK
  8. DULOXETINE [Concomitant]
     Active Substance: DULOXETINE
     Indication: Product used for unknown indication
     Dosage: UNK UNK, UNKNOWN FREQ
  9. SOLIFENACIN [Suspect]
     Active Substance: SOLIFENACIN
     Indication: Product used for unknown indication
     Dosage: UNK UNK, UNKNOWN FREQ
  10. TRIMETHOPRIM [Suspect]
     Active Substance: TRIMETHOPRIM
     Dosage: 400 MILLIGRAM, QD
     Route: 048
     Dates: start: 20190118, end: 20190120
  11. TRIMETHOPRIM [Suspect]
     Active Substance: TRIMETHOPRIM
     Dosage: 200 MILLIGRAM, QD
     Route: 048
     Dates: start: 20190118, end: 20190120

REACTIONS (19)
  - Food poisoning [Not Recovered/Not Resolved]
  - Illness [Recovering/Resolving]
  - Nightmare [Not Recovered/Not Resolved]
  - Gastrointestinal pain [Not Recovered/Not Resolved]
  - Contusion [Not Recovered/Not Resolved]
  - Feeling abnormal [Unknown]
  - Vomiting [Unknown]
  - Genital pain [Recovered/Resolved]
  - Genital ulceration [Recovered/Resolved]
  - Oral pain [Recovering/Resolving]
  - Diarrhoea [Recovered/Resolved]
  - Condition aggravated [Unknown]
  - Abdominal pain [Recovered/Resolved]
  - Malaise [Unknown]
  - Drug interaction [Unknown]
  - Mucosal inflammation [Recovered/Resolved]
  - Abdominal pain upper [Recovering/Resolving]
  - Inflammatory marker increased [Unknown]
  - Abdominal distension [Unknown]

NARRATIVE: CASE EVENT DATE: 20190121
